FAERS Safety Report 4355122-0 (Version None)
Quarter: 2004Q2

REPORT INFORMATION
  Report Type: 
  Country: None (occurrence: None)
  Receive Date: 20040504
  Receipt Date: 20040423
  Transmission Date: 20050107
  Serious: Yes (Other)
  Sender: FDA-Public Use
  Company Number: US-JNJFOC-20040200768

PATIENT
  Age: 60 Year
  Sex: Female
  Weight: 68.0396 kg

DRUGS (17)
  1. REMICADE [Suspect]
     Indication: CROHN'S DISEASE
     Dosage: INTRAVENOUS
     Route: 042
     Dates: start: 20010101
  2. REMICADE [Suspect]
     Indication: CROHN'S DISEASE
     Dosage: INTRAVENOUS
     Route: 042
     Dates: start: 20040122
  3. IMURAN [Concomitant]
  4. VIOXX [Concomitant]
  5. CELEXA (CITALOPRAM HYDRBROMIDE) [Concomitant]
  6. ATACAND [Concomitant]
  7. LORAZEPAM [Concomitant]
  8. NEURONTIN (CITICOLINE SODIUM) [Concomitant]
  9. ZOCOR [Concomitant]
  10. CLONAZEPAM [Concomitant]
  11. ASACOL [Concomitant]
  12. FLEXERIL [Concomitant]
  13. LOTENSIN [Concomitant]
  14. ATENOLOL [Concomitant]
  15. ESTRADIOL [Concomitant]
  16. VALTREX [Concomitant]
  17. PERCOSET (OXYCOCET) [Concomitant]

REACTIONS (3)
  - ARTHRALGIA [None]
  - SLEEP DISORDER [None]
  - SPINAL FUSION SURGERY [None]
